FAERS Safety Report 7560459-8 (Version None)
Quarter: 2011Q2

REPORT INFORMATION
  Report Type: 
  Country: None (occurrence: None)
  Receive Date: 20110621
  Receipt Date: 20110613
  Transmission Date: 20111010
  Serious: Yes (Other)
  Sender: FDA-Public Use
  Company Number: US-GENZYME-THYM-1002528

PATIENT
  Age: 11 Year
  Sex: Female

DRUGS (7)
  1. THYMOGLOBULIN [Suspect]
     Indication: HEART TRANSPLANT
     Dosage: UNK
     Route: 042
     Dates: start: 20110611, end: 20110611
  2. MYCOPHENOLATE MEFETIL [Concomitant]
     Indication: PRODUCT USED FOR UNKNOWN INDICATION
  3. CORTICOSTEROID NOS [Concomitant]
     Indication: PREMEDICATION
     Dosage: 1.5 MG/KG, UNK
  4. EPINEPHRINE [Concomitant]
     Indication: PRODUCT USED FOR UNKNOWN INDICATION
     Dosage: UNK
     Dates: start: 20110611
  5. BENADRYL [Concomitant]
     Indication: PREMEDICATION
  6. METHYLPREDNISOLONE [Concomitant]
     Indication: PRODUCT USED FOR UNKNOWN INDICATION
  7. TYLENOL-500 [Concomitant]
     Indication: PREMEDICATION

REACTIONS (3)
  - T-LYMPHOCYTE COUNT DECREASED [None]
  - LIP SWELLING [None]
  - SWOLLEN TONGUE [None]
